FAERS Safety Report 7365228-X (Version None)
Quarter: 2011Q1

REPORT INFORMATION
  Report Type: 
  Country: None (occurrence: None)
  Receive Date: 20110322
  Receipt Date: 20110309
  Transmission Date: 20110831
  Serious: Yes (Hospitalization, Other)
  Sender: FDA-Public Use
  Company Number: NL-AMGEN-NLDSP2011006172

PATIENT
  Age: 47 Year
  Sex: Female
  Weight: 76 kg

DRUGS (8)
  1. HUMIRA [Suspect]
     Indication: PSORIATIC ARTHROPATHY
     Dosage: 40 MG, EVERY 2 WEEKS
     Route: 058
     Dates: start: 20110104
  2. ENBREL [Suspect]
     Indication: RHEUMATOID ARTHRITIS
  3. ARCOXIA [Concomitant]
     Dosage: UNK
     Dates: start: 20110101
  4. ENBREL [Suspect]
     Indication: PSORIATIC ARTHROPATHY
     Dosage: UNK
     Dates: start: 20101101, end: 20101201
  5. ARCOXIA [Concomitant]
     Dosage: UNK
     Dates: end: 20101201
  6. OMEPRAZOLE [Concomitant]
     Indication: PROPHYLAXIS AGAINST GASTROINTESTINAL ULCER
     Dosage: 40 MG, 1X/DAY
     Route: 048
     Dates: start: 20100101
  7. HUMIRA [Suspect]
     Indication: RHEUMATOID ARTHRITIS
  8. VENLAFAXINE HCL [Concomitant]
     Indication: DEPRESSION
     Dosage: 37.5 MG, 1X/DAY
     Route: 048
     Dates: start: 20080101

REACTIONS (14)
  - HYPOTENSION [None]
  - RHEUMATOID ARTHRITIS [None]
  - OEDEMA [None]
  - MALAISE [None]
  - STRESS [None]
  - URTICARIA [None]
  - PALLOR [None]
  - PARAESTHESIA [None]
  - INJECTION SITE REACTION [None]
  - PRURITUS GENERALISED [None]
  - PRESYNCOPE [None]
  - PERIPHERAL COLDNESS [None]
  - DRUG INEFFECTIVE [None]
  - DRUG HYPERSENSITIVITY [None]
